FAERS Safety Report 9353683 (Version 1)
Quarter: 2013Q2

REPORT INFORMATION
  Report Type: Spontaneous
  Country: US (occurrence: None)
  Receive Date: 20130617
  Receipt Date: 20130617
  Transmission Date: 20140414
  Serious: Yes (Other)
  Sender: FDA-Public Use
  Company Number: None

PATIENT
  Age: 7 Year
  Sex: Female
  Weight: 23.13 kg

DRUGS (1)
  1. MIRALAX [Suspect]

REACTIONS (28)
  - Pain [None]
  - Flatulence [None]
  - Phobia [None]
  - Anxiety [None]
  - Irritability [None]
  - Nervousness [None]
  - Nightmare [None]
  - Mood swings [None]
  - Dizziness postural [None]
  - Anger [None]
  - Confusional state [None]
  - Aggression [None]
  - Incontinence [None]
  - Suicidal ideation [None]
  - Aggression [None]
  - Morbid thoughts [None]
  - Obsessive-compulsive disorder [None]
  - Unevaluable event [None]
  - Antisocial behaviour [None]
  - Communication disorder [None]
  - Memory impairment [None]
  - Insomnia [None]
  - Movement disorder [None]
  - Social avoidant behaviour [None]
  - Disturbance in attention [None]
  - Dysphonia [None]
  - Self injurious behaviour [None]
  - Bite [None]
